FAERS Safety Report 24307652 (Version 2)
Quarter: 2024Q4

REPORT INFORMATION
  Report Type: Spontaneous
  Country: NL (occurrence: NL)
  Receive Date: 20240911
  Receipt Date: 20241003
  Transmission Date: 20250115
  Serious: Yes (Hospitalization)
  Sender: ROCHE
  Company Number: None

PATIENT
  Age: 53 Year
  Sex: Male
  Weight: 78 kg

DRUGS (6)
  1. EMICIZUMAB [Suspect]
     Active Substance: EMICIZUMAB
     Indication: Haemophilia A without inhibitors
     Dosage: PRESCRIPTION 210 MG/2 WK; USE 105 MG/2-4 WK
     Route: 065
     Dates: start: 20221221, end: 20240801
  2. ATORVASTATIN [Concomitant]
     Active Substance: ATORVASTATIN
     Dosage: TABLET, 40 MG (MILLIGRAM)
  3. NICOTINE PLEISTER / Brand name not specified [Concomitant]
     Dosage: PLEISTER
  4. PERINDOPRIL TABLET 2MG (ERBUMINE) / Brand name not specified [Concomitant]
     Dosage: TABLET, 2 MG (MILLIGRAM)
  5. CLOPIDOGREL BISULFATE [Concomitant]
     Active Substance: CLOPIDOGREL BISULFATE
     Dosage: TABLET, 75 MG (MILLIGRAM)
  6. BISOPROLOL TABLET   1,25MG / Brand name not specified [Concomitant]
     Dosage: TABLET, 1,25 MG (MILLIGRAM)

REACTIONS (2)
  - Myocardial infarction [Recovering/Resolving]
  - Coronary artery disease [Recovering/Resolving]

NARRATIVE: CASE EVENT DATE: 20240813
